FAERS Safety Report 9350036 (Version 4)
Quarter: 2013Q3

REPORT INFORMATION
  Report Type: Spontaneous
  Country: DE (occurrence: DE)
  Receive Date: 20130615
  Receipt Date: 20130807
  Transmission Date: 20140515
  Serious: Yes (Death, Other)
  Sender: FDA-Public Use
  Company Number: DE-ROCHE-1231772

PATIENT
  Sex: Female

DRUGS (3)
  1. ZELBORAF [Suspect]
     Indication: METASTATIC MALIGNANT MELANOMA
     Route: 048
  2. ZELBORAF [Suspect]
     Route: 048
  3. ZELBORAF [Suspect]
     Route: 048
     Dates: start: 20130222, end: 20130605

REACTIONS (6)
  - Encephalitis [Fatal]
  - Vasculitis cerebral [Not Recovered/Not Resolved]
  - Personality change [Not Recovered/Not Resolved]
  - Fatigue [Not Recovered/Not Resolved]
  - Rash [Unknown]
  - Malignant neoplasm progression [Fatal]
